FAERS Safety Report 5921113-9 (Version None)
Quarter: 2008Q4

REPORT INFORMATION
  Report Type: 
  Country: None (occurrence: None)
  Receive Date: 20081016
  Receipt Date: 20081006
  Transmission Date: 20090506
  Serious: Yes (Life-Threatening, Hospitalization)
  Sender: FDA-Public Use
  Company Number: DE-ELI_LILLY_AND_COMPANY-DE200804005681

PATIENT
  Sex: Male

DRUGS (6)
  1. ZYPREXA [Suspect]
     Dosage: UNK, UNK
     Dates: start: 20000214, end: 20000508
  2. ZYPREXA [Suspect]
     Dosage: 30 MG, DAILY (1/D)
     Route: 048
     Dates: start: 20000509, end: 20000802
  3. ZYPREXA [Suspect]
     Dosage: 25 MG, DAILY (1/D)
     Route: 048
     Dates: start: 20000803
  4. CITALOPRAM HYDROBROMIDE [Concomitant]
     Dosage: 20 MG, UNK
  5. RISPERDAL [Concomitant]
     Dosage: 0.5 MG, EACH EVENING
  6. ZOPICLON [Concomitant]
     Indication: INSOMNIA
     Dosage: 1 D/F, AS NEEDED

REACTIONS (10)
  - AKINESIA [None]
  - INTESTINAL STRANGULATION [None]
  - NAUSEA [None]
  - OVERDOSE [None]
  - PERITONEAL ADHESIONS [None]
  - PERITONITIS [None]
  - POST PROCEDURAL SEPSIS [None]
  - SCHIZOPHRENIA [None]
  - TRANSAMINASES INCREASED [None]
  - WEIGHT INCREASED [None]
